FAERS Safety Report 4901359-9 (Version None)
Quarter: 2006Q1

REPORT INFORMATION
  Report Type: 
  Country: None (occurrence: None)
  Receive Date: 20060206
  Receipt Date: 20051209
  Transmission Date: 20060701
  Serious: Yes (Other)
  Sender: FDA-Public Use
  Company Number: 2005UW18600

PATIENT
  Age: 68 Year
  Sex: Male
  Weight: 83.9 kg

DRUGS (2)
  1. CASODEX [Suspect]
     Indication: PROSTATE CANCER
     Route: 048
  2. LUPRON [Concomitant]

REACTIONS (4)
  - BACTERIAL INFECTION [None]
  - EAR PAIN [None]
  - PROSTATE CANCER [None]
  - SUDDEN HEARING LOSS [None]
